FAERS Safety Report 8934657 (Version 2)
Quarter: 2013Q1

REPORT INFORMATION
  Report Type: Spontaneous
  Country: JP (occurrence: JP)
  Receive Date: 20121129
  Receipt Date: 20130213
  Transmission Date: 20140127
  Serious: Yes (Death, Hospitalization)
  Sender: FDA-Public Use
  Company Number: JP-OTSUKA-JP-2012-15756

PATIENT
  Age: 76 Year
  Sex: Female
  Weight: 48 kg

DRUGS (18)
  1. SAMSCA [Suspect]
     Indication: CARDIAC FAILURE
     Dosage: 15 MG MILLIGRAM(S), QD
     Route: 048
     Dates: start: 20111001, end: 20111001
  2. SOLDEM 3A [Concomitant]
     Dosage: UNK
     Route: 041
     Dates: end: 20111001
  3. HANP [Concomitant]
     Dosage: UNK
     Route: 041
     Dates: end: 20111003
  4. MILRILA [Concomitant]
     Dosage: UNK
     Route: 041
     Dates: end: 20111003
  5. DOBUTAMINE [Concomitant]
     Dosage: UNK
     Route: 041
     Dates: end: 20111003
  6. ARTIST [Concomitant]
     Dosage: 2.5 MG MILLIGRAM(S), QD
     Route: 048
  7. GASTER D [Concomitant]
     Dosage: 20 MG MILLIGRAM(S), BID
     Route: 048
  8. SIGMART [Concomitant]
     Dosage: 5 MG MILLIGRAM(S), BID
     Route: 048
  9. DIART [Concomitant]
     Dosage: 15 MG MILLIGRAM(S), QD
     Route: 048
  10. PARIET [Concomitant]
     Dosage: 10 MG MILLIGRAM(S), QD
     Route: 048
  11. BAYASPIRIN [Concomitant]
     Dosage: 100 MG MILLIGRAM(S), QD
     Route: 048
  12. BENECID [Concomitant]
     Dosage: 250 MG MILLIGRAM(S), QD
     Route: 048
  13. JUVELA N [Concomitant]
     Dosage: 200 MG MILLIGRAM(S), TID
     Route: 048
  14. LIPITOR [Concomitant]
     Dosage: 10 MG MILLIGRAM(S), QD
     Route: 048
  15. LUPRAC [Concomitant]
     Dosage: 8 MG MILLIGRAM(S), QD
     Route: 048
  16. VASOLAN [Concomitant]
     Dosage: 40 MG MILLIGRAM(S), BID
     Route: 048
  17. SELARA [Concomitant]
     Dosage: 50 MG MILLIGRAM(S), QD
     Route: 048
  18. PIMOBENDAN [Concomitant]
     Dosage: 2.5 MG MILLIGRAM(S), BID
     Route: 048

REACTIONS (4)
  - Cardiac failure [Fatal]
  - Disseminated intravascular coagulation [Fatal]
  - Altered state of consciousness [Recovered/Resolved]
  - Hypernatraemia [Recovered/Resolved]
